FAERS Safety Report 9391659 (Version 1)
Quarter: 2013Q3

REPORT INFORMATION
  Report Type: Spontaneous
  Country: AU (occurrence: AU)
  Receive Date: 20130709
  Receipt Date: 20130709
  Transmission Date: 20140515
  Serious: Yes (Death)
  Sender: FDA-Public Use
  Company Number: AU-B.I. PHARMACEUTICALS,INC./RIDGEFIELD-2013-AU-00809AU

PATIENT
  Age: 70 Year
  Sex: Male

DRUGS (5)
  1. PRADAXA [Suspect]
     Indication: CEREBROVASCULAR ACCIDENT PROPHYLAXIS
     Dosage: 300 MG
     Dates: start: 20110713
  2. PRADAXA [Suspect]
     Indication: ATRIAL FIBRILLATION
  3. CARVEDILOL [Concomitant]
     Indication: CARDIOMYOPATHY
  4. COVERSYL [Concomitant]
     Indication: CARDIOMYOPATHY
  5. DIGOXIN [Concomitant]
     Indication: ATRIAL FIBRILLATION

REACTIONS (2)
  - Arrhythmia [Fatal]
  - Chest discomfort [Unknown]
